FAERS Safety Report 10489433 (Version 1)
Quarter: 2014Q4

REPORT INFORMATION
  Report Type: Spontaneous
  Country: US (occurrence: US)
  Receive Date: 20141002
  Receipt Date: 20141002
  Transmission Date: 20150528
  Serious: Yes (Congenital Anomaly)
  Sender: FDA-Public Use
  Company Number: US-FRI-1000071065

PATIENT
  Age: -10 Year
  Sex: Male

DRUGS (1)
  1. LEXAPRO [Suspect]
     Active Substance: ESCITALOPRAM OXALATE
     Route: 064

REACTIONS (5)
  - Right atrial dilatation [Unknown]
  - Atrial septal defect [Unknown]
  - Cardiac murmur [Unknown]
  - Congenital anomaly [Unknown]
  - Dilatation ventricular [Unknown]

NARRATIVE: CASE EVENT DATE: 20040823
